FAERS Safety Report 5463825-X (Version None)
Quarter: 2007Q3

REPORT INFORMATION
  Report Type: 
  Country: None (occurrence: None)
  Receive Date: 20070919
  Receipt Date: 20070904
  Transmission Date: 20080115
  Serious: Yes (Hospitalization)
  Sender: FDA-Public Use
  Company Number: 2007S1008345

PATIENT
  Age: 53 Year
  Sex: Male
  Weight: 70.3075 kg

DRUGS (3)
  1. FENTANYL TRANSDERMAL SYSTEM [Suspect]
     Indication: CANCER PAIN
     Dosage: 75 UG/HR; EVERY 3 DAYS; TRANSDERMAL; 75 UG/HR; TRANSDERMAL
     Route: 062
     Dates: end: 20070801
  2. FENTANYL TRANSDERMAL SYSTEM [Suspect]
     Indication: CANCER PAIN
     Dosage: 75 UG/HR; EVERY 3 DAYS; TRANSDERMAL; 75 UG/HR; TRANSDERMAL
     Route: 062
     Dates: start: 20070301
  3. CHEMOTHERAPEUTICS NOS [Concomitant]

REACTIONS (6)
  - DRUG INEFFECTIVE [None]
  - INCORRECT DRUG ADMINISTRATION DURATION [None]
  - NAUSEA [None]
  - PAIN [None]
  - PHARMACEUTICAL PRODUCT COMPLAINT [None]
  - VOMITING [None]
